FAERS Safety Report 17014764 (Version 1)
Quarter: 2019Q4

REPORT INFORMATION
  Report Type: Spontaneous
  Country: US (occurrence: US)
  Receive Date: 20191001
  Receipt Date: 20191001
  Transmission Date: 20200122
  Serious: Yes (Hospitalization)
  Sender: FDA-Public Use
  Company Number: None

PATIENT
  Age: 77 Year
  Sex: Male
  Weight: 77.6 kg

DRUGS (2)
  1. EVEROLIMUS (RAD-001) [Suspect]
     Active Substance: EVEROLIMUS
     Dates: end: 20190829
  2. NEXAVAR [Suspect]
     Active Substance: SORAFENIB
     Dates: end: 20190829

REACTIONS (8)
  - Hepatic enzyme increased [None]
  - Presyncope [None]
  - Alanine aminotransferase increased [None]
  - Acute kidney injury [None]
  - Gastroenteritis [None]
  - Sepsis [None]
  - Human anaplasmosis [None]
  - Blood alkaline phosphatase increased [None]

NARRATIVE: CASE EVENT DATE: 20190830
